FAERS Safety Report 8207134-4 (Version None)
Quarter: 2012Q1

REPORT INFORMATION
  Report Type: 
  Country: None (occurrence: None)
  Receive Date: 20120314
  Receipt Date: 20120312
  Transmission Date: 20120608
  Serious: No
  Sender: FDA-Public Use
  Company Number: US-PFIZER INC-2012065240

PATIENT
  Sex: Male

DRUGS (2)
  1. LIPITOR [Suspect]
     Dosage: 80 MG, 1X/DAY
     Route: 048
     Dates: start: 20120301, end: 20120301
  2. ATORVASTATIN [Suspect]
     Dosage: 40 MG, 1X/DAY
     Route: 048
     Dates: start: 20120201, end: 20120301

REACTIONS (2)
  - CHEST PAIN [None]
  - DRUG INTOLERANCE [None]
